FAERS Safety Report 7719267-7 (Version None)
Quarter: 2011Q3

REPORT INFORMATION
  Report Type: 
  Country: None (occurrence: None)
  Receive Date: 20110830
  Receipt Date: 20110823
  Transmission Date: 20111222
  Serious: Yes (Hospitalization)
  Sender: FDA-Public Use
  Company Number: JP-AMGEN-JPNCT2011044148

PATIENT
  Age: 69 Year
  Sex: Male

DRUGS (3)
  1. PLETAL [Concomitant]
     Dosage: UNK
     Route: 048
  2. WARFARIN SODIUM [Concomitant]
     Dosage: UNK
     Route: 048
  3. PANITUMUMAB [Suspect]
     Indication: COLORECTAL CANCER
     Dosage: UNK UNK, Q2WK
     Route: 041
     Dates: start: 20110809

REACTIONS (3)
  - SKIN HAEMORRHAGE [None]
  - DERMATITIS ACNEIFORM [None]
  - DIARRHOEA [None]
